FAERS Safety Report 6132890-9 (Version None)
Quarter: 2009Q1

REPORT INFORMATION
  Report Type: 
  Country: None (occurrence: None)
  Receive Date: 20090326
  Receipt Date: 20090323
  Transmission Date: 20090719
  Serious: Yes (Other)
  Sender: FDA-Public Use
  Company Number: NL-ASTRAZENECA-2009AC00921

PATIENT
  Age: 58 Year
  Sex: Male

DRUGS (3)
  1. ATACAND [Suspect]
     Indication: HYPERTENSION
  2. ATACAND [Suspect]
     Dates: start: 19970101
  3. PAROXETINE HCL [Concomitant]
     Dates: start: 19940101

REACTIONS (1)
  - RESPIRATORY TRACT INFECTION [None]
